FAERS Safety Report 20829929 (Version 2)
Quarter: 2022Q4

REPORT INFORMATION
  Report Type: Spontaneous
  Country: GB (occurrence: GB)
  Receive Date: 20220514
  Receipt Date: 20221114
  Transmission Date: 20230112
  Serious: Yes (Other)
  Sender: FDA-Public Use
  Company Number: GB-MHRA-MED-202204281014145860-E1PXS

PATIENT
  Age: 25 Year
  Sex: Male
  Weight: 70 kg

DRUGS (1)
  1. FINASTERIDE [Suspect]
     Active Substance: FINASTERIDE
     Indication: Alopecia
     Dosage: 1 MILLIGRAM, ONCE A DAY
     Route: 065
     Dates: start: 20220107, end: 20220114

REACTIONS (16)
  - Suicidal ideation [Not Recovered/Not Resolved]
  - Erectile dysfunction [Not Recovered/Not Resolved]
  - Insomnia [Not Recovered/Not Resolved]
  - Muscle atrophy [Not Recovered/Not Resolved]
  - Anxiety [Not Recovered/Not Resolved]
  - Mental impairment [Not Recovered/Not Resolved]
  - Loss of libido [Not Recovered/Not Resolved]
  - Back pain [Unknown]
  - Genital atrophy [Not Recovered/Not Resolved]
  - Disturbance in attention [Unknown]
  - Orgasm abnormal [Unknown]
  - Sexual dysfunction [Unknown]
  - Hair growth abnormal [Unknown]
  - Poor quality sleep [Unknown]
  - Skin atrophy [Unknown]
  - Semen analysis abnormal [Unknown]

NARRATIVE: CASE EVENT DATE: 20220107
